FAERS Safety Report 5923971-0 (Version None)
Quarter: 2008Q4

REPORT INFORMATION
  Report Type: 
  Country: None (occurrence: None)
  Receive Date: 20081020
  Receipt Date: 20081015
  Transmission Date: 20090506
  Serious: Yes (Hospitalization)
  Sender: FDA-Public Use
  Company Number: US-BRISTOL-MYERS SQUIBB COMPANY-14371330

PATIENT
  Age: 56 Year
  Sex: Male
  Weight: 67 kg

DRUGS (3)
  1. ERBITUX [Suspect]
     Indication: PHARYNGEAL CANCER STAGE UNSPECIFIED
     Dosage: LOADING DOSE 400MG/M2 WEEKLY 250MG/M2 SIX WEEKS. STARTED ON 27AUG2008. COURSE ASSOCIATED 03OCT08.
     Dates: start: 20080929, end: 20080929
  2. CISPLATIN [Suspect]
     Indication: PHARYNGEAL CANCER STAGE UNSPECIFIED
     Dosage: STARTED ON 27AUG2008. COURSE ASSOCIATED 03OCT08.  100 MG/M2 ON DAYS1+22
     Dates: start: 20080929, end: 20080929
  3. RADIATION THERAPY [Suspect]
     Indication: PHARYNGEAL CANCER STAGE UNSPECIFIED
     Dosage: START DATE OF 1ST C:27AUG2008 1 DOSAGE FORM = 5800CGY NO OF TRACTIONS:29 NO OF ELAPSED DAYS:32
     Dates: start: 20081010, end: 20081010

REACTIONS (3)
  - DIARRHOEA [None]
  - GASTROENTERITIS [None]
  - NAUSEA [None]
